FAERS Safety Report 8345609-8 (Version None)
Quarter: 2012Q2

REPORT INFORMATION
  Report Type: 
  Country: None (occurrence: None)
  Receive Date: 20120508
  Receipt Date: 20120425
  Transmission Date: 20120825
  Serious: Yes (Death, Other)
  Sender: FDA-Public Use
  Company Number: VE-ROCHE-GNE319216

PATIENT
  Sex: Female

DRUGS (4)
  1. XOLAIR [Suspect]
     Dosage: UNK
     Dates: start: 20100108
  2. XOLAIR [Suspect]
     Indication: ASTHMA
     Dosage: UNK
     Dates: start: 20101108
  3. XOLAIR [Suspect]
     Dosage: UNK
     Dates: start: 20101201
  4. HYZAAR (HYDROCHLOROTHIAZIDE/LOSARTAN) [Concomitant]
     Dosage: UNK
     Dates: start: 20060101

REACTIONS (3)
  - RESPIRATORY ARREST [None]
  - INJECTION SITE DISCOMFORT [None]
  - ASTHMA [None]
